FAERS Safety Report 7218349 (Version 4)
Quarter: 2019Q1

REPORT INFORMATION
  Report Type: Spontaneous
  Country: GB (occurrence: GB)
  Receive Date: 20091215
  Receipt Date: 20190227
  Transmission Date: 20190418
  Serious: Yes (Hospitalization, Other)
  Sender: FDA-Public Use
  Company Number: GB-PFIZER INC-2009304648

PATIENT
  Age: 77 Year
  Sex: Male

DRUGS (2)
  1. CAPECITABINE. [Interacting]
     Active Substance: CAPECITABINE
     Indication: COLON CANCER
     Dosage: UNK
  2. PHENYTOIN SODIUM. [Suspect]
     Active Substance: PHENYTOIN SODIUM
     Indication: EPILEPSY
     Dosage: 350 MG, 1X/DAY

REACTIONS (2)
  - Potentiating drug interaction [Recovered/Resolved]
  - Nervous system disorder [Recovered/Resolved]
